FAERS Safety Report 7328417-6 (Version None)
Quarter: 2011Q1

REPORT INFORMATION
  Report Type: 
  Country: None (occurrence: None)
  Receive Date: 20110303
  Receipt Date: 20110225
  Transmission Date: 20110831
  Serious: Yes (Other)
  Sender: FDA-Public Use
  Company Number: JP-SANOFI-AVENTIS-200111496JP

PATIENT
  Age: 75 Year
  Sex: Female
  Weight: 50.5 kg

DRUGS (5)
  1. MONOTARD [Concomitant]
     Indication: DIABETES MELLITUS
     Dosage: 12 UNITS BID, BEFORE BREAKFAST AND DINNER DOSE:12 UNIT(S)
  2. ALLEGRA [Suspect]
     Indication: SENILE PRURITUS
     Dosage: DOSE UNIT: 60 MG
     Route: 048
     Dates: start: 20010406, end: 20010416
  3. SENNOSIDE A+B [Concomitant]
     Indication: CONSTIPATION
     Route: 048
     Dates: start: 20010101, end: 20010516
  4. THEOLONG [Concomitant]
     Route: 048
     Dates: start: 20010101, end: 20010516
  5. CIMETIDINE [Concomitant]
     Route: 048
     Dates: start: 20010101, end: 20010516

REACTIONS (1)
  - DEPRESSED LEVEL OF CONSCIOUSNESS [None]
